FAERS Safety Report 5328458-4 (Version None)
Quarter: 2007Q2

REPORT INFORMATION
  Report Type: 
  Country: None (occurrence: None)
  Receive Date: 20070518
  Receipt Date: 20070508
  Transmission Date: 20071010
  Serious: Yes (Hospitalization)
  Sender: FDA-Public Use
  Company Number: FI-AMGEN-UK224379

PATIENT
  Sex: Male

DRUGS (6)
  1. NEUPOGEN [Suspect]
     Indication: NEUTROPENIA
     Route: 058
     Dates: start: 20070326, end: 20070402
  2. TRAMAL - SLOW RELEASE [Concomitant]
     Route: 048
  3. PREDNISONE TAB [Concomitant]
     Route: 048
     Dates: start: 20070318
  4. DURAGESIC-100 [Concomitant]
     Route: 062
  5. TENOX [Concomitant]
  6. PANTOPRAZOLE SODIUM [Concomitant]
     Route: 048

REACTIONS (2)
  - RASH GENERALISED [None]
  - VASCULITIS [None]
